FAERS Safety Report 25261101 (Version 1)
Quarter: 2025Q2

REPORT INFORMATION
  Report Type: Spontaneous
  Country: GB (occurrence: GB)
  Receive Date: 20250501
  Receipt Date: 20250501
  Transmission Date: 20250716
  Serious: Yes (Other)
  Sender: MYLAN
  Company Number: GB-MYLANLABS-2025M1036658

PATIENT
  Age: 18 Month
  Sex: Female

DRUGS (52)
  1. VALPROATE [Suspect]
     Active Substance: VALPROIC ACID
     Indication: Primitive neuroectodermal tumour
     Dosage: 30 MILLIGRAM/KILOGRAM, QD, IN TWO DIVIDED DOSES
  2. VALPROATE [Suspect]
     Active Substance: VALPROIC ACID
     Dosage: 30 MILLIGRAM/KILOGRAM, QD, IN TWO DIVIDED DOSES
  3. VALPROATE [Suspect]
     Active Substance: VALPROIC ACID
     Dosage: 30 MILLIGRAM/KILOGRAM, QD, IN TWO DIVIDED DOSES
     Route: 048
  4. VALPROATE [Suspect]
     Active Substance: VALPROIC ACID
     Dosage: 30 MILLIGRAM/KILOGRAM, QD, IN TWO DIVIDED DOSES
     Route: 048
  5. VALPROATE [Suspect]
     Active Substance: VALPROIC ACID
     Dosage: 40 MILLIGRAM/KILOGRAM, QD, IN TWO DIVIDED DOSES
     Route: 048
  6. VALPROATE [Suspect]
     Active Substance: VALPROIC ACID
     Dosage: 40 MILLIGRAM/KILOGRAM, QD, IN TWO DIVIDED DOSES
     Route: 048
  7. VALPROATE [Suspect]
     Active Substance: VALPROIC ACID
     Dosage: 40 MILLIGRAM/KILOGRAM, QD, IN TWO DIVIDED DOSES
  8. VALPROATE [Suspect]
     Active Substance: VALPROIC ACID
     Dosage: 40 MILLIGRAM/KILOGRAM, QD, IN TWO DIVIDED DOSES
  9. VALPROATE [Suspect]
     Active Substance: VALPROIC ACID
     Dosage: 50 MILLIGRAM/KILOGRAM, QD, IN TWO DIVIDED DOSES
     Route: 048
  10. VALPROATE [Suspect]
     Active Substance: VALPROIC ACID
     Dosage: 50 MILLIGRAM/KILOGRAM, QD, IN TWO DIVIDED DOSES
     Route: 048
  11. VALPROATE [Suspect]
     Active Substance: VALPROIC ACID
     Dosage: 50 MILLIGRAM/KILOGRAM, QD, IN TWO DIVIDED DOSES
  12. VALPROATE [Suspect]
     Active Substance: VALPROIC ACID
     Dosage: 50 MILLIGRAM/KILOGRAM, QD, IN TWO DIVIDED DOSES
  13. VALPROATE [Suspect]
     Active Substance: VALPROIC ACID
     Dosage: 60 MILLIGRAM/KILOGRAM, QD, IN TWO DIVIDED DOSES
     Route: 048
  14. VALPROATE [Suspect]
     Active Substance: VALPROIC ACID
     Dosage: 60 MILLIGRAM/KILOGRAM, QD, IN TWO DIVIDED DOSES
     Route: 048
  15. VALPROATE [Suspect]
     Active Substance: VALPROIC ACID
     Dosage: 60 MILLIGRAM/KILOGRAM, QD, IN TWO DIVIDED DOSES
  16. VALPROATE [Suspect]
     Active Substance: VALPROIC ACID
     Dosage: 60 MILLIGRAM/KILOGRAM, QD, IN TWO DIVIDED DOSES
  17. VALPROATE [Suspect]
     Active Substance: VALPROIC ACID
     Dosage: 65 MILLIGRAM/KILOGRAM, QD
     Route: 048
  18. VALPROATE [Suspect]
     Active Substance: VALPROIC ACID
     Dosage: 65 MILLIGRAM/KILOGRAM, QD
     Route: 048
  19. VALPROATE [Suspect]
     Active Substance: VALPROIC ACID
     Dosage: 65 MILLIGRAM/KILOGRAM, QD
  20. VALPROATE [Suspect]
     Active Substance: VALPROIC ACID
     Dosage: 65 MILLIGRAM/KILOGRAM, QD
  21. VALPROATE [Suspect]
     Active Substance: VALPROIC ACID
     Dosage: 70 MILLIGRAM/KILOGRAM, QD, IN THREE DIVIDED DOSES
     Route: 048
  22. VALPROATE [Suspect]
     Active Substance: VALPROIC ACID
     Dosage: 70 MILLIGRAM/KILOGRAM, QD, IN THREE DIVIDED DOSES
     Route: 048
  23. VALPROATE [Suspect]
     Active Substance: VALPROIC ACID
     Dosage: 70 MILLIGRAM/KILOGRAM, QD, IN THREE DIVIDED DOSES
  24. VALPROATE [Suspect]
     Active Substance: VALPROIC ACID
     Dosage: 70 MILLIGRAM/KILOGRAM, QD, IN THREE DIVIDED DOSES
  25. VALPROATE [Suspect]
     Active Substance: VALPROIC ACID
     Dosage: 90 MILLIGRAM/KILOGRAM, QD
     Route: 048
  26. VALPROATE [Suspect]
     Active Substance: VALPROIC ACID
     Dosage: 90 MILLIGRAM/KILOGRAM, QD
     Route: 048
  27. VALPROATE [Suspect]
     Active Substance: VALPROIC ACID
     Dosage: 90 MILLIGRAM/KILOGRAM, QD
  28. VALPROATE [Suspect]
     Active Substance: VALPROIC ACID
     Dosage: 90 MILLIGRAM/KILOGRAM, QD
  29. VALPROATE [Suspect]
     Active Substance: VALPROIC ACID
     Dosage: 72 MILLIGRAM/KILOGRAM, QD
  30. VALPROATE [Suspect]
     Active Substance: VALPROIC ACID
     Dosage: 72 MILLIGRAM/KILOGRAM, QD
  31. VALPROATE [Suspect]
     Active Substance: VALPROIC ACID
     Dosage: 72 MILLIGRAM/KILOGRAM, QD
     Route: 048
  32. VALPROATE [Suspect]
     Active Substance: VALPROIC ACID
     Dosage: 72 MILLIGRAM/KILOGRAM, QD
     Route: 048
  33. CARBAMAZEPINE [Suspect]
     Active Substance: CARBAMAZEPINE
     Indication: Partial seizures
  34. CARBAMAZEPINE [Suspect]
     Active Substance: CARBAMAZEPINE
     Route: 065
  35. CARBAMAZEPINE [Suspect]
     Active Substance: CARBAMAZEPINE
     Route: 065
  36. CARBAMAZEPINE [Suspect]
     Active Substance: CARBAMAZEPINE
  37. TOPOTECAN [Concomitant]
     Active Substance: TOPOTECAN HYDROCHLORIDE
     Indication: Primitive neuroectodermal tumour
  38. TOPOTECAN [Concomitant]
     Active Substance: TOPOTECAN HYDROCHLORIDE
     Route: 037
  39. TOPOTECAN [Concomitant]
     Active Substance: TOPOTECAN HYDROCHLORIDE
     Route: 037
  40. TOPOTECAN [Concomitant]
     Active Substance: TOPOTECAN HYDROCHLORIDE
  41. ISOTRETINOIN [Concomitant]
     Active Substance: ISOTRETINOIN
     Indication: Primitive neuroectodermal tumour
  42. ISOTRETINOIN [Concomitant]
     Active Substance: ISOTRETINOIN
     Route: 048
  43. ISOTRETINOIN [Concomitant]
     Active Substance: ISOTRETINOIN
     Route: 048
  44. ISOTRETINOIN [Concomitant]
     Active Substance: ISOTRETINOIN
  45. CARBOPLATIN [Concomitant]
     Active Substance: CARBOPLATIN
     Indication: Primitive neuroectodermal tumour
  46. CARBOPLATIN [Concomitant]
     Active Substance: CARBOPLATIN
     Route: 065
  47. CARBOPLATIN [Concomitant]
     Active Substance: CARBOPLATIN
     Route: 065
  48. CARBOPLATIN [Concomitant]
     Active Substance: CARBOPLATIN
  49. THIOTEPA [Concomitant]
     Active Substance: THIOTEPA
     Indication: Primitive neuroectodermal tumour
     Route: 065
  50. THIOTEPA [Concomitant]
     Active Substance: THIOTEPA
     Route: 065
  51. THIOTEPA [Concomitant]
     Active Substance: THIOTEPA
     Route: 065
  52. THIOTEPA [Concomitant]
     Active Substance: THIOTEPA
     Route: 065

REACTIONS (2)
  - Drug ineffective [Unknown]
  - Tremor [Unknown]
